FAERS Safety Report 8490127-X (Version None)
Quarter: 2012Q2

REPORT INFORMATION
  Report Type: 
  Country: None (occurrence: None)
  Receive Date: 20120626
  Receipt Date: 20120622
  Transmission Date: 20120825
  Serious: Yes (Hospitalization)
  Sender: FDA-Public Use
  Company Number: 2012SP029948

PATIENT
  Age: 48 Year
  Sex: Male
  Weight: 78.1548 kg

DRUGS (3)
  1. SYLATRON [Suspect]
     Indication: METASTATIC MALIGNANT MELANOMA
     Dosage: 3 MCG/KG;QW;SC, UNK;SC
     Route: 058
     Dates: start: 20120608
  2. SYLATRON [Suspect]
     Indication: METASTATIC MALIGNANT MELANOMA
     Dosage: 3 MCG/KG;QW;SC, UNK;SC
     Route: 058
     Dates: start: 20120601
  3. YERVOY [Suspect]
     Indication: METASTATIC MALIGNANT MELANOMA
     Dosage: 3 MG/KG;Q3W;IV
     Route: 042
     Dates: start: 20120601

REACTIONS (5)
  - NAUSEA [None]
  - HYPONATRAEMIA [None]
  - ANAEMIA [None]
  - DEHYDRATION [None]
  - CONSTIPATION [None]
